FAERS Safety Report 6067009-6 (Version None)
Quarter: 2009Q1

REPORT INFORMATION
  Report Type: 
  Country: None (occurrence: None)
  Receive Date: 20090205
  Receipt Date: 20090129
  Transmission Date: 20090719
  Serious: Yes (Hospitalization)
  Sender: FDA-Public Use
  Company Number: GB-AVENTIS-200910168GDDC

PATIENT
  Age: 75 Year
  Sex: Female
  Weight: 65.4 kg

DRUGS (10)
  1. APIDRA [Suspect]
     Route: 058
     Dates: start: 20070518, end: 20080930
  2. APIDRA [Suspect]
     Route: 058
     Dates: start: 20070518, end: 20080930
  3. ASPIRIN [Concomitant]
     Indication: PROPHYLAXIS
     Route: 048
     Dates: start: 20001214
  4. RAMIPRIL [Concomitant]
     Indication: HYPERTENSION
     Route: 048
     Dates: start: 20010905
  5. SIMVASTATIN [Concomitant]
     Route: 048
     Dates: start: 20021210
  6. DOMPERIDONE [Concomitant]
     Indication: VOMITING
     Route: 048
     Dates: start: 20080220, end: 20080811
  7. WARFARIN [Concomitant]
     Indication: ATRIAL FIBRILLATION
     Dosage: DOSE: VARIED
     Route: 048
     Dates: start: 20060105
  8. DIGOXIN [Concomitant]
     Indication: ATRIAL FIBRILLATION
     Route: 048
     Dates: start: 20060105
  9. FUROSEMIDE [Concomitant]
     Route: 048
     Dates: start: 20050812
  10. BISOPROLOL FUMARATE [Concomitant]
     Indication: ATRIAL FIBRILLATION
     Route: 048
     Dates: start: 20001214, end: 20080930

REACTIONS (4)
  - DYSPNOEA [None]
  - HYPERVENTILATION [None]
  - PRODUCT QUALITY ISSUE [None]
  - PRURITUS [None]
